FAERS Safety Report 17930159 (Version 1)
Quarter: 2020Q2

REPORT INFORMATION
  Report Type: Other
  Country: US (occurrence: US)
  Receive Date: 20200623
  Receipt Date: 20200623
  Transmission Date: 20200714
  Serious: No
  Sender: FDA-Public Use
  Company Number: US-BIOVITRUM-2019US1588

PATIENT
  Sex: Female

DRUGS (8)
  1. KINERET [Suspect]
     Active Substance: ANAKINRA
     Indication: CRYOPYRIN ASSOCIATED PERIODIC SYNDROME
     Route: 058
     Dates: start: 20190618
  2. SALINE EYE DROPS [Concomitant]
  3. SINGULAIR [Concomitant]
     Active Substance: MONTELUKAST SODIUM
  4. ORAL CONTRACEPTIVE [Concomitant]
     Active Substance: UNSPECIFIED INGREDIENT
  5. NOVOLOG [Concomitant]
     Active Substance: INSULIN ASPART
  6. GABAPENTIN. [Concomitant]
     Active Substance: GABAPENTIN
  7. PLAQUENIL [Concomitant]
     Active Substance: HYDROXYCHLOROQUINE SULFATE
  8. VITAMIN D [Concomitant]
     Active Substance: VITAMIN D NOS

REACTIONS (5)
  - Pruritus [Unknown]
  - Injection site pain [Unknown]
  - Injection site hypersensitivity [Unknown]
  - Urticaria [Unknown]
  - Drug ineffective [Unknown]
